FAERS Safety Report 4390275-X (Version None)
Quarter: 2004Q3

REPORT INFORMATION
  Report Type: 
  Country: None (occurrence: None)
  Receive Date: 20040706
  Receipt Date: 20040625
  Transmission Date: 20050211
  Serious: Yes (Other)
  Sender: FDA-Public Use
  Company Number: DE-ROCHE-372267

PATIENT
  Sex: Female

DRUGS (3)
  1. PEG-INTERFERON ALFA 2A (RO 25-8310) [Suspect]
     Route: 058
     Dates: start: 20040416
  2. PEG-INTERFERON ALFA 2A (RO 25-8310) [Suspect]
     Route: 058
  3. RIBAVIRIN [Concomitant]
     Dosage: RIBAVIRIN DOSAGE WAS REDUCED TO 400 MG, DAILY, IN RESPONSE TO THE EVENT OF PANCYTOPENIA.
     Route: 048

REACTIONS (3)
  - PANCYTOPENIA [None]
  - PURPURA [None]
  - PYREXIA [None]
